FAERS Safety Report 21974487 (Version 1)
Quarter: 2023Q1

REPORT INFORMATION
  Report Type: Spontaneous
  Country: US (occurrence: US)
  Receive Date: 20230209
  Receipt Date: 20230209
  Transmission Date: 20230418
  Serious: No
  Sender: FDA-Public Use
  Company Number: US-KARYOPHARM-2022KPT001626

PATIENT

DRUGS (8)
  1. XPOVIO [Suspect]
     Active Substance: SELINEXOR
     Indication: Plasma cell myeloma
     Dosage: 60 MG, WEEKLY FOR 3 WEEKS AND 1 WEEK OFF
     Route: 048
     Dates: start: 20221202
  2. DEXAMETHASONE [Concomitant]
     Active Substance: DEXAMETHASONE
  3. KYPROLIS [Concomitant]
     Active Substance: CARFILZOMIB
  4. NORCO [Concomitant]
     Active Substance: ACETAMINOPHEN\HYDROCODONE BITARTRATE
  5. OLANZAPINE [Concomitant]
     Active Substance: OLANZAPINE
  6. ONDANSETRON [Concomitant]
     Active Substance: ONDANSETRON
  7. SIMVASTATIN [Concomitant]
     Active Substance: SIMVASTATIN
  8. VALTREX [Concomitant]
     Active Substance: VALACYCLOVIR HYDROCHLORIDE

REACTIONS (2)
  - Somnolence [Unknown]
  - Diarrhoea [Recovered/Resolved]

NARRATIVE: CASE EVENT DATE: 20221201
